FAERS Safety Report 16591861 (Version 3)
Quarter: 2019Q3

REPORT INFORMATION
  Report Type: Spontaneous
  Country: TW (occurrence: TW)
  Receive Date: 20190718
  Receipt Date: 20190925
  Transmission Date: 20191004
  Serious: Yes (Hospitalization, Other)
  Sender: FDA-Public Use
  Company Number: TW-PFIZER INC-2019240091

PATIENT
  Age: 68 Year
  Sex: Male

DRUGS (3)
  1. SUTENT [Suspect]
     Active Substance: SUNITINIB MALATE
     Indication: RENAL CELL CARCINOMA
     Dosage: 37.5 MG (3 CAPSULES OF 12.5 MG), 1X/DAY
     Route: 048
     Dates: start: 20190510, end: 20190604
  2. SUTENT [Suspect]
     Active Substance: SUNITINIB MALATE
     Dosage: 37.5 MG, 1X/DAY
     Route: 048
     Dates: end: 20190807
  3. SUTENT [Suspect]
     Active Substance: SUNITINIB MALATE
     Dosage: 37.5 MG (3 CAPSULES OF 12.5 MG), 1X/DAY
     Route: 048
     Dates: start: 20190812

REACTIONS (11)
  - Haematochezia [Recovered/Resolved]
  - Fatigue [Recovering/Resolving]
  - Liver function test increased [Unknown]
  - Condition aggravated [Recovered/Resolved]
  - Decreased appetite [Recovering/Resolving]
  - Hypogeusia [Recovering/Resolving]
  - White blood cell count decreased [Unknown]
  - Palpitations [Recovering/Resolving]
  - Taste disorder [Unknown]
  - Haemorrhoidal haemorrhage [Recovered/Resolved]
  - Haemoglobin decreased [Unknown]

NARRATIVE: CASE EVENT DATE: 20190531
